FAERS Safety Report 5943283-9 (Version None)
Quarter: 2008Q4

REPORT INFORMATION
  Report Type: 
  Country: None (occurrence: None)
  Receive Date: 20081105
  Receipt Date: 20081105
  Transmission Date: 20090506
  Serious: Yes (Life-Threatening, Other)
  Sender: FDA-Public Use
  Company Number: None

PATIENT
  Age: 27 Year
  Sex: Female
  Weight: 87.5442 kg

DRUGS (1)
  1. CHANTIX [Suspect]

REACTIONS (9)
  - DECREASED INTEREST [None]
  - DEPRESSION [None]
  - FEAR [None]
  - HALLUCINATION [None]
  - MOOD ALTERED [None]
  - PANIC ATTACK [None]
  - SELF-INJURIOUS IDEATION [None]
  - SUICIDAL IDEATION [None]
  - THINKING ABNORMAL [None]
